FAERS Safety Report 23663343 (Version 1)
Quarter: 2024Q1

REPORT INFORMATION
  Report Type: Other
  Country: US (occurrence: None)
  Receive Date: 20240322
  Receipt Date: 20240322
  Transmission Date: 20240409
  Serious: Yes (Hospitalization)
  Sender: FDA-Public Use
  Company Number: US-ROCHE-3526823

PATIENT
  Age: 69 Year
  Sex: Female
  Weight: 73.548 kg

DRUGS (4)
  1. RITUXAN [Suspect]
     Active Substance: RITUXIMAB
     Indication: Rheumatoid arthritis
     Route: 041
     Dates: start: 20230530, end: 20230530
  2. ACTEMRA [Suspect]
     Active Substance: TOCILIZUMAB
     Indication: Rheumatoid arthritis
     Route: 042
     Dates: end: 202302
  3. OXYGEN [Concomitant]
     Active Substance: OXYGEN
     Indication: Interstitial lung disease
  4. PREDNISONE [Concomitant]
     Active Substance: PREDNISONE

REACTIONS (19)
  - Hypoxia [Recovered/Resolved]
  - Sepsis [Unknown]
  - Fall [Unknown]
  - Skin laceration [Recovered/Resolved]
  - Pain [Unknown]
  - Dyspnoea [Recovered/Resolved]
  - Abscess [Unknown]
  - Swelling [Unknown]
  - Delirium [Recovered/Resolved]
  - Hallucination [Recovered/Resolved]
  - Spinal disorder [Recovered/Resolved]
  - Vascular access site extravasation [Unknown]
  - Crepitations [Not Recovered/Not Resolved]
  - Granulocyte count decreased [Not Recovered/Not Resolved]
  - Pyrexia [Recovered/Resolved]
  - Gait disturbance [Not Recovered/Not Resolved]
  - Balance disorder [Not Recovered/Not Resolved]
  - Carpal tunnel syndrome [Recovered/Resolved]
  - Animal scratch [Unknown]

NARRATIVE: CASE EVENT DATE: 20230601
